FAERS Safety Report 9549559 (Version 1)
Quarter: 2013Q3

REPORT INFORMATION
  Report Type: Spontaneous
  Country: US (occurrence: None)
  Receive Date: 20130919
  Receipt Date: 20130919
  Transmission Date: 20140515
  Serious: Yes (Hospitalization)
  Sender: FDA-Public Use
  Company Number: 2013090031

PATIENT
  Age: 61 Year
  Sex: Female

DRUGS (6)
  1. TORASEMIDE [Suspect]
     Indication: HYPERTENSION
     Route: 048
     Dates: start: 20100101, end: 20130518
  2. KARVEA [Suspect]
     Indication: HYPERTENSION
     Route: 048
     Dates: start: 20100101, end: 20130518
  3. EUTIROX (LEVOTHYROXINE) [Concomitant]
  4. ESOMEPRAZOLE [Concomitant]
  5. CHLOROQUINE DIPHOSPHATE [Concomitant]
  6. KANRENOL [Suspect]
     Indication: HYPERTENSION
     Route: 048
     Dates: start: 20100101, end: 20130518

REACTIONS (2)
  - Renal failure acute [None]
  - Atrioventricular block complete [None]
